FAERS Safety Report 23678536 (Version 1)
Quarter: 2024Q1

REPORT INFORMATION
  Report Type: Spontaneous
  Country: PR (occurrence: US)
  Receive Date: 20240327
  Receipt Date: 20240327
  Transmission Date: 20240409
  Serious: Yes (Death)
  Sender: FDA-Public Use
  Company Number: PR-VIIV HEALTHCARE LIMITED-US2024AMR037566

PATIENT
  Age: 60 Year
  Sex: Female

DRUGS (2)
  1. RILPIVIRINE [Suspect]
     Active Substance: RILPIVIRINE
     Indication: HIV infection
     Dosage: UNK UNK, Q2M, 600MG/ 900MG
     Route: 065
     Dates: start: 20220408
  2. CABOTEGRAVIR [Suspect]
     Active Substance: CABOTEGRAVIR
     Indication: HIV infection
     Dosage: UNK UNK, Q2M, 600MG/ 900MG
     Route: 065
     Dates: start: 20220408

REACTIONS (1)
  - Death [Fatal]
